FAERS Safety Report 15736344 (Version 1)
Quarter: 2018Q4

REPORT INFORMATION
  Report Type: Spontaneous
  Country: US (occurrence: US)
  Receive Date: 20181218
  Receipt Date: 20181218
  Transmission Date: 20190205
  Serious: Yes (Hospitalization)
  Sender: FDA-Public Use
  Company Number: None

PATIENT
  Sex: Female

DRUGS (5)
  1. IBUPROFEN TAB 600MG [Concomitant]
  2. XELJANZ XR 11MG TABLETS [Concomitant]
     Dates: start: 20180307, end: 20180511
  3. PREDNISONE TAB 5MG [Concomitant]
  4. ACTEMRA [Concomitant]
     Active Substance: TOCILIZUMAB
     Dates: start: 20180717, end: 20180912
  5. HUMIRA [Suspect]
     Active Substance: ADALIMUMAB
     Indication: RHEUMATOID ARTHRITIS
     Dosage: ??          OTHER FREQUENCY:EVERY OTHER WEEK;?
     Route: 058

REACTIONS (1)
  - Basal cell carcinoma [None]
